FAERS Safety Report 5570562-X (Version None)
Quarter: 2007Q4

REPORT INFORMATION
  Report Type: 
  Country: None (occurrence: None)
  Receive Date: 20071221
  Receipt Date: 20071214
  Transmission Date: 20080405
  Serious: Yes (Death, Life-Threatening)
  Sender: FDA-Public Use
  Company Number: BE-BAYER-200715389GDS

PATIENT
  Age: 54 Year
  Sex: Male
  Weight: 80 kg

DRUGS (23)
  1. AVELOX [Suspect]
     Indication: CHRONIC OBSTRUCTIVE PULMONARY DISEASE
     Dosage: TOTAL DAILY DOSE: 400 MG  UNIT DOSE: 400 MG
     Route: 048
     Dates: start: 20070801, end: 20070801
  2. AVELOX [Suspect]
     Dosage: TOTAL DAILY DOSE: 400 MG  UNIT DOSE: 400 MG
     Route: 048
     Dates: start: 20070404, end: 20070404
  3. AUGMENTIN '250' [Concomitant]
     Indication: DRUG USE FOR UNKNOWN INDICATION
     Dosage: TOTAL DAILY DOSE: 6 G
     Route: 042
  4. AUGMENTIN '250' [Concomitant]
     Dosage: TOTAL DAILY DOSE: 4 G
     Route: 042
     Dates: start: 20070411, end: 20070413
  5. TRANXENE [Concomitant]
     Indication: DRUG USE FOR UNKNOWN INDICATION
     Route: 042
  6. ETUMINE [Concomitant]
     Indication: DRUG USE FOR UNKNOWN INDICATION
     Route: 030
     Dates: start: 20070410, end: 20070410
  7. ETUMINE [Concomitant]
     Route: 042
  8. ZANTAC [Concomitant]
     Indication: DRUG USE FOR UNKNOWN INDICATION
     Dosage: TOTAL DAILY DOSE: 15 MG
     Route: 048
  9. LYSOMUCIL [Concomitant]
     Indication: DRUG USE FOR UNKNOWN INDICATION
     Dosage: TOTAL DAILY DOSE: 1200 MG
     Route: 048
  10. NICOTINELL [Concomitant]
     Indication: DRUG USE FOR UNKNOWN INDICATION
     Route: 061
  11. FRAXIPARINE [Concomitant]
     Indication: DRUG USE FOR UNKNOWN INDICATION
     Dosage: TOTAL DAILY DOSE: 0.14 ML
     Route: 058
  12. METHANOL [Concomitant]
     Indication: DRUG USE FOR UNKNOWN INDICATION
     Route: 048
     Dates: start: 20070411
  13. MOXAL [Concomitant]
     Indication: DRUG USE FOR UNKNOWN INDICATION
     Route: 048
     Dates: start: 20070412, end: 20070412
  14. LORAZEPAM [Concomitant]
     Indication: DRUG USE FOR UNKNOWN INDICATION
     Route: 048
     Dates: start: 20070414
  15. DUOVENT [Concomitant]
     Indication: DRUG USE FOR UNKNOWN INDICATION
     Dosage: TOTAL DAILY DOSE: 8 PUFF
     Route: 055
     Dates: start: 20070404
  16. GLUCOSE [Concomitant]
     Indication: DRUG USE FOR UNKNOWN INDICATION
     Route: 042
     Dates: end: 20070414
  17. CINOXINA FE (ILLEGIBLE) [Concomitant]
     Indication: DRUG USE FOR UNKNOWN INDICATION
     Dosage: TOTAL DAILY DOSE: 800 MG
     Route: 042
     Dates: start: 20070403
  18. TILDIEM [Concomitant]
     Indication: DRUG USE FOR UNKNOWN INDICATION
     Dosage: TOTAL DAILY DOSE: 300 MG
     Route: 048
  19. CIPRAMIL [Concomitant]
     Indication: DRUG USE FOR UNKNOWN INDICATION
     Dosage: TOTAL DAILY DOSE: 10 MG  UNIT DOSE: 20 MG
     Route: 048
     Dates: end: 20070404
  20. FUNEM (ILLEGLIBLE) [Concomitant]
     Indication: DRUG USE FOR UNKNOWN INDICATION
     Route: 048
     Dates: start: 20070404
  21. SOLU-MEDROL [Concomitant]
     Indication: DRUG USE FOR UNKNOWN INDICATION
     Route: 042
     Dates: start: 20070404, end: 20070406
  22. MEDROL SOUME (ILLEGIBLE) [Concomitant]
     Indication: DRUG USE FOR UNKNOWN INDICATION
     Route: 065
     Dates: start: 20070407
  23. SERETIDE DISKUS [Concomitant]
     Indication: DRUG USE FOR UNKNOWN INDICATION
     Route: 055

REACTIONS (1)
  - RESPIRATORY ARREST [None]
